FAERS Safety Report 7890232 (Version 2)
Quarter: 2012Q4

REPORT INFORMATION
  Report Type: 
  Country: US (occurrence: US)
  Receive Date: 20110407
  Receipt Date: 20120828
  Transmission Date: 20130627
  Serious: Yes (Hospitalization)
  Sender: FDA-Public Use
  Company Number: US-US-EMD SERONO, INC.-7051344

PATIENT
  Age: 55 Year
  Sex: Female
  Weight: 36 kg

DRUGS (5)
  1. REBIF [Suspect]
     Indication: MULTIPLE SCLEROSIS
     Route: 058
     Dates: start: 20090122, end: 20101016
  2. REBIF [Suspect]
     Route: 058
     Dates: start: 20110301
  3. IMITREX [Concomitant]
     Indication: HEADACHE
  4. TOPAMAX [Concomitant]
     Indication: CONVULSION
  5. KEPPRA [Concomitant]
     Indication: CONVULSION

REACTIONS (5)
  - Upper limb fracture [Recovered/Resolved]
  - Humerus fracture [Recovered/Resolved]
  - Diarrhoea [Unknown]
  - Fall [Recovered/Resolved]
  - Contusion [Unknown]
